FAERS Safety Report 6472049-9 (Version None)
Quarter: 2009Q4

REPORT INFORMATION
  Report Type: 
  Country: None (occurrence: None)
  Receive Date: 20091203
  Receipt Date: 20080508
  Transmission Date: 20100525
  Serious: Yes (Hospitalization)
  Sender: FDA-Public Use
  Company Number: US-ELI_LILLY_AND_COMPANY-US200804003154

PATIENT
  Sex: Male
  Weight: 136.5 kg

DRUGS (19)
  1. BYETTA [Suspect]
     Indication: TYPE 2 DIABETES MELLITUS
     Dosage: 5 UG, 2/D
     Route: 058
     Dates: start: 20060901
  2. BYETTA [Suspect]
     Dosage: 10 UG, 2/D
     Route: 058
  3. BYETTA [Suspect]
     Dosage: 5 UG, 2/D
     Route: 058
  4. BYETTA [Suspect]
     Dosage: 10 UG, 2/D
     Route: 058
  5. BYETTA [Suspect]
     Dosage: 5 UG, 2/D
     Route: 058
  6. ACTOS [Concomitant]
     Indication: TYPE 2 DIABETES MELLITUS
  7. ANTI-DIABETICS [Concomitant]
     Indication: TYPE 2 DIABETES MELLITUS
  8. METFORMIN HCL [Concomitant]
     Indication: TYPE 2 DIABETES MELLITUS
  9. GINSENG                            /00480901/ [Concomitant]
     Indication: TYPE 2 DIABETES MELLITUS
  10. ANTI-DIABETICS [Concomitant]
  11. CINNAMON [Concomitant]
     Indication: TYPE 2 DIABETES MELLITUS
  12. CARDURA [Concomitant]
     Indication: BLOOD PRESSURE
  13. EFFEXOR [Concomitant]
  14. AVODART [Concomitant]
  15. TESTOSTERONE [Concomitant]
  16. AMARYL [Concomitant]
     Indication: TYPE 2 DIABETES MELLITUS
  17. AVANDIA [Concomitant]
  18. SUDAFED 12 HOUR [Concomitant]
  19. VIAGRA [Concomitant]

REACTIONS (14)
  - BLOOD GLUCOSE DECREASED [None]
  - BLOOD PRESSURE INCREASED [None]
  - COLD SWEAT [None]
  - COUGH [None]
  - DECREASED APPETITE [None]
  - FALL [None]
  - FATIGUE [None]
  - PAIN [None]
  - PLEURAL EFFUSION [None]
  - PNEUMONIA [None]
  - RIB FRACTURE [None]
  - SLEEP DISORDER [None]
  - TREMOR [None]
  - WEIGHT DECREASED [None]
